FAERS Safety Report 13398418 (Version 4)
Quarter: 2017Q2

REPORT INFORMATION
  Report Type: Report from Study
  Country: US (occurrence: US)
  Receive Date: 20170403
  Receipt Date: 20170615
  Transmission Date: 20170830
  Serious: Yes (Hospitalization, Other)
  Sender: FDA-Public Use
  Company Number: US-ACTELION-A-NJ2016-136822

PATIENT
  Age: 51 Year
  Sex: Male
  Weight: 104.31 kg

DRUGS (3)
  1. VELETRI [Suspect]
     Active Substance: EPOPROSTENOL
     Dosage: 20 NG/KG, PER MIN
     Route: 042
     Dates: start: 20101020
  2. WARFARIN [Concomitant]
     Active Substance: WARFARIN
  3. VELETRI [Suspect]
     Active Substance: EPOPROSTENOL
     Indication: PULMONARY ARTERIAL HYPERTENSION
     Dosage: 20 NG/KG, PER MIN
     Route: 042
     Dates: start: 20101020

REACTIONS (24)
  - Device alarm issue [Recovered/Resolved]
  - Cough [Recovered/Resolved]
  - Oedema peripheral [Recovering/Resolving]
  - Catheter site erythema [Recovered/Resolved]
  - Hypoaesthesia [Unknown]
  - Rectal haemorrhage [Unknown]
  - Bronchitis [Unknown]
  - Productive cough [Unknown]
  - Oropharyngeal pain [Unknown]
  - Insomnia [Unknown]
  - Oxygen saturation decreased [Unknown]
  - Catheter management [Unknown]
  - Flushing [Unknown]
  - Viral upper respiratory tract infection [Unknown]
  - Catheter site swelling [Recovered/Resolved]
  - Catheter placement [Unknown]
  - Condition aggravated [Unknown]
  - Catheter site related reaction [Unknown]
  - Pain in jaw [Unknown]
  - Pulmonary arterial pressure increased [Unknown]
  - Oropharyngeal pain [Recovered/Resolved]
  - Thrombosis in device [Unknown]
  - Device occlusion [Recovered/Resolved]
  - Product deposit [Recovered/Resolved]

NARRATIVE: CASE EVENT DATE: 201605
